FAERS Safety Report 5165832-3 (Version None)
Quarter: 2006Q4

REPORT INFORMATION
  Report Type: 
  Country: None (occurrence: None)
  Receive Date: 20061128
  Receipt Date: 20061114
  Transmission Date: 20070319
  Serious: Yes (Death, Other)
  Sender: FDA-Public Use
  Company Number: 2006US002414

PATIENT
  Age: 39 Year
  Sex: Male

DRUGS (17)
  1. AMBISOME [Suspect]
     Indication: TRICHOSPORON INFECTION
     Dosage: 150 MG, UID/QD, IV NOS
     Route: 042
     Dates: start: 20060926, end: 20060926
  2. VFEND [Concomitant]
  3. NEOLAMIN MULTI V    (VITAMINS NOS) [Concomitant]
  4. DOPAMINE HYDROCHLORIDE [Concomitant]
  5. PN TWIN     (AMINO ACIDS NOS, ELECTROLYTES NOS, CARBOHYDRATE NOS) [Concomitant]
  6. SOLU-CORTEF [Concomitant]
  7. PANTOL           (PANTHENOL) [Concomitant]
  8. LASIX [Concomitant]
  9. SOLDACTONE        (POTASSIUM CANRENOATE) [Concomitant]
  10. AMIKACIN SULFATE [Concomitant]
  11. MEROPEN            (MEROPENEM) [Concomitant]
  12. HANP [Concomitant]
  13. PRIMPERAN ELIXIR [Concomitant]
  14. SOSEGON            (PENTAZOCINE) [Concomitant]
  15. CYTARABINE [Concomitant]
  16. VENOGLOBULIN-I [Concomitant]
  17. HALOPERIDOL [Concomitant]

REACTIONS (4)
  - DISEASE PROGRESSION [None]
  - FUNGAL SEPSIS [None]
  - GENERAL PHYSICAL HEALTH DETERIORATION [None]
  - RENAL FAILURE ACUTE [None]
